FAERS Safety Report 5353177-8 (Version None)
Quarter: 2007Q2

REPORT INFORMATION
  Report Type: 
  Country: None (occurrence: None)
  Receive Date: 20070608
  Receipt Date: 20070530
  Transmission Date: 20071010
  Serious: Yes (Hospitalization)
  Sender: FDA-Public Use
  Company Number: 012047

PATIENT
  Age: 24 Year
  Sex: Female
  Weight: 77.1 kg

DRUGS (1)
  1. PLAN B [Suspect]
     Indication: CONTRACEPTION
     Dosage: 1 TABLET, Q12HR, ORAL
     Route: 048
     Dates: start: 20070318, end: 20070319

REACTIONS (9)
  - BLOOD GLUCOSE DECREASED [None]
  - DIARRHOEA [None]
  - FATIGUE [None]
  - HEMIPARESIS [None]
  - HEMIPLEGIA [None]
  - HYPERTENSION [None]
  - PETIT MAL EPILEPSY [None]
  - RECTAL HAEMORRHAGE [None]
  - THROMBOSIS [None]
